FAERS Safety Report 7481583-4 (Version None)
Quarter: 2011Q2

REPORT INFORMATION
  Report Type: 
  Country: None (occurrence: None)
  Receive Date: 20110516
  Receipt Date: 20110509
  Transmission Date: 20111010
  Serious: Yes (Other)
  Sender: FDA-Public Use
  Company Number: CA-JNJFOC-20110503729

PATIENT
  Age: 53 Year
  Sex: Female

DRUGS (1)
  1. IBUPROFEN [Suspect]
     Indication: TOOTHACHE
     Route: 048
     Dates: start: 20110430, end: 20110502

REACTIONS (6)
  - VOMITING [None]
  - PALPITATIONS [None]
  - SYNCOPE [None]
  - APHASIA [None]
  - DIZZINESS [None]
  - TREMOR [None]
